FAERS Safety Report 8797073 (Version 1)
Quarter: 2012Q4

REPORT INFORMATION
  Report Type: Report from Study
  Country: IN (occurrence: IN)
  Receive Date: 20120919
  Receipt Date: 20120919
  Transmission Date: 20130627
  Serious: Yes (Death)
  Sender: FDA-Public Use
  Company Number: IN-GLAXOSMITHKLINE-B0822619A

PATIENT
  Age: 60 Year
  Sex: Female

DRUGS (2)
  1. TYVERB [Suspect]
     Indication: BREAST CANCER METASTATIC
     Route: 065
  2. CAPECITABINE [Concomitant]

REACTIONS (4)
  - Breast cancer [Fatal]
  - Metastases to central nervous system [Fatal]
  - Diarrhoea [Unknown]
  - Drug ineffective [Unknown]
